FAERS Safety Report 17419904 (Version 1)
Quarter: 2020Q1

REPORT INFORMATION
  Report Type: Spontaneous
  Country: US (occurrence: US)
  Receive Date: 20200214
  Receipt Date: 20200214
  Transmission Date: 20200409
  Serious: No
  Sender: FDA-Public Use
  Company Number: US-BAYER-2020-026911

PATIENT
  Sex: Female

DRUGS (3)
  1. MIRABEGRON [Concomitant]
     Active Substance: MIRABEGRON
  2. TEGRETOL [Concomitant]
     Active Substance: CARBAMAZEPINE
  3. MIRALAX [Suspect]
     Active Substance: POLYETHYLENE GLYCOL 3350
     Indication: IRRITABLE BOWEL SYNDROME
     Dosage: 1 DF, BID
     Route: 048

REACTIONS (3)
  - Off label use [Unknown]
  - Product taste abnormal [None]
  - Product use in unapproved indication [Unknown]
